FAERS Safety Report 18775182 (Version 1)
Quarter: 2021Q1

REPORT INFORMATION
  Report Type: Spontaneous
  Country: US (occurrence: US)
  Receive Date: 20210122
  Receipt Date: 20210122
  Transmission Date: 20210419
  Serious: Yes (Other)
  Sender: FDA-Public Use
  Company Number: US-SA-2021SA018410

PATIENT
  Sex: Male

DRUGS (1)
  1. LANTUS [Suspect]
     Active Substance: INSULIN GLARGINE
     Dosage: 40 TO 45 UNITS
     Route: 058

REACTIONS (5)
  - Arthritis [Unknown]
  - Coronary artery occlusion [Unknown]
  - Blood glucose decreased [Unknown]
  - Pulmonary oedema [Unknown]
  - Neuropathy peripheral [Unknown]
